FAERS Safety Report 10234324 (Version 1)
Quarter: 2014Q2

REPORT INFORMATION
  Report Type: Spontaneous
  Country: US (occurrence: US)
  Receive Date: 20140612
  Receipt Date: 20140612
  Transmission Date: 20141212
  Serious: No
  Sender: FDA-Public Use
  Company Number: US-TEVA-487819USA

PATIENT
  Age: 22 Year
  Sex: Male

DRUGS (3)
  1. CLARAVIS [Suspect]
  2. CLARAVIS [Suspect]
  3. AMNESTEEM [Suspect]

REACTIONS (1)
  - Photosensitivity reaction [Unknown]
